FAERS Safety Report 16721492 (Version 1)
Quarter: 2019Q3

REPORT INFORMATION
  Report Type: Spontaneous
  Country: US (occurrence: US)
  Receive Date: 20190820
  Receipt Date: 20190820
  Transmission Date: 20191005
  Serious: No
  Sender: FDA-Public Use
  Company Number: US-BIODELIVERY SCIENCES INTERNATIONAL-2018BDSI0428

PATIENT
  Age: 67 Year
  Sex: Male

DRUGS (6)
  1. LEVOTHYROXINE. [Concomitant]
     Active Substance: LEVOTHYROXINE
     Indication: HYPOTHYROIDISM
     Dosage: UNK; UNK
     Route: 048
  2. BUPRENORPHINE. [Suspect]
     Active Substance: BUPRENORPHINE
     Indication: ORAL PAIN
     Dosage: AS NEEDED
     Route: 002
  3. NO DRUG NAME [Concomitant]
     Indication: PRODUCT USED FOR UNKNOWN INDICATION
     Dosage: UNK; UNK
     Route: 048
  4. NO DRUG NAME [Concomitant]
     Indication: HYPERTENSION
  5. IBUPROFEN. [Concomitant]
     Active Substance: IBUPROFEN
     Indication: PRODUCT USED FOR UNKNOWN INDICATION
     Dosage: UNK; UNK
     Route: 048
  6. PARACETAMOL [Concomitant]
     Active Substance: ACETAMINOPHEN
     Indication: ARTHRALGIA
     Route: 048

REACTIONS (1)
  - Product prescribing issue [Unknown]

NARRATIVE: CASE EVENT DATE: 20180727
